FAERS Safety Report 4786358-2 (Version None)
Quarter: 2005Q3

REPORT INFORMATION
  Report Type: 
  Country: None (occurrence: None)
  Receive Date: 20050927
  Receipt Date: 20050815
  Transmission Date: 20060218
  Serious: No
  Sender: FDA-Public Use
  Company Number: USA0508105551

PATIENT
  Age: 8 Year
  Sex: Male
  Weight: 39 kg

DRUGS (5)
  1. STRATTERA [Suspect]
     Indication: ATTENTION DEFICIT/HYPERACTIVITY DISORDER
     Dosage: 40 MG
     Dates: start: 20030101, end: 20050806
  2. TOPAMAX [Concomitant]
  3. DDAVP (DESMOPRESSIN ACETATE) [Concomitant]
  4. RISPERDAL [Concomitant]
  5. ADDERALL 10 [Concomitant]

REACTIONS (3)
  - DISTURBANCE IN ATTENTION [None]
  - MUSCULOSKELETAL DISORDER [None]
  - TIC [None]
